FAERS Safety Report 14787998 (Version 1)
Quarter: 2018Q2

REPORT INFORMATION
  Report Type: Spontaneous
  Country: US (occurrence: US)
  Receive Date: 20180422
  Receipt Date: 20180422
  Transmission Date: 20180711
  Serious: Yes (Hospitalization)
  Sender: FDA-Public Use
  Company Number: US-CELGENEUS-USA-20180406725

PATIENT
  Age: 67 Year
  Sex: Male

DRUGS (1)
  1. REVLIMID [Suspect]
     Active Substance: LENALIDOMIDE
     Indication: AMYLOIDOSIS
     Dosage: 5 MILLIGRAM
     Route: 048
     Dates: start: 20180111, end: 20180228

REACTIONS (2)
  - Pyrexia [Unknown]
  - Pneumonia pseudomonal [Unknown]

NARRATIVE: CASE EVENT DATE: 20180228
